FAERS Safety Report 18549807 (Version 4)
Quarter: 2022Q1

REPORT INFORMATION
  Report Type: Spontaneous
  Country: US (occurrence: US)
  Receive Date: 20201126
  Receipt Date: 20220201
  Transmission Date: 20220423
  Serious: Yes (Other)
  Sender: FDA-Public Use
  Company Number: US-NOVARTISTESTPH-NVSC2020US307471

PATIENT
  Sex: Female

DRUGS (1)
  1. AZOPT [Suspect]
     Active Substance: BRINZOLAMIDE
     Indication: Product used for unknown indication
     Dosage: 3X DAILY
     Route: 065

REACTIONS (5)
  - Blindness [Unknown]
  - Taste disorder [Unknown]
  - Dysgeusia [Unknown]
  - Vision blurred [Unknown]
  - Product container issue [Unknown]
